FAERS Safety Report 8798577 (Version 2)
Quarter: 2012Q4

REPORT INFORMATION
  Report Type: Report from Study
  Country: JP (occurrence: JP)
  Receive Date: 20120920
  Receipt Date: 20121227
  Transmission Date: 20130627
  Serious: Yes (Other)
  Sender: FDA-Public Use
  Company Number: JP-VERTEX PHARMACEUTICAL INC.-AE-2012-005095

PATIENT
  Age: 48 Year
  Sex: Female

DRUGS (9)
  1. VX-950 (TELAPREVIR) [Suspect]
     Indication: CHRONIC HEPATITIS C
     Dosage: 2250 mg, qd
     Route: 048
     Dates: start: 20120111, end: 20120404
  2. PEGINTERFERON ALFA 2B [Suspect]
     Indication: CHRONIC HEPATITIS C
     Dosage: 1.5 ?g/kg, qw
     Route: 058
     Dates: start: 20120111, end: 20120619
  3. RIBAVIRIN [Suspect]
     Indication: CHRONIC HEPATITIS C
     Dosage: 800 mg, qd
     Route: 048
     Dates: start: 20120111, end: 20120214
  4. RIBAVIRIN [Suspect]
     Dosage: 600 mg, qd
     Route: 048
     Dates: start: 20120215, end: 20120312
  5. RIBAVIRIN [Suspect]
     Dosage: 800 mg, qd
     Route: 048
     Dates: start: 20120313, end: 20120402
  6. RIBAVIRIN [Suspect]
     Dosage: 1000 mg, qd
     Route: 048
     Dates: start: 20120403, end: 20120626
  7. LENDORMIN [Concomitant]
     Dosage: 0.25 mg, qd
     Route: 048
     Dates: end: 20120423
  8. HALCION [Concomitant]
     Dosage: 0.5 mg, qd
     Route: 048
     Dates: start: 20120424
  9. SOLANAX [Concomitant]
     Dosage: 1.2 mg, qd
     Route: 048

REACTIONS (2)
  - White blood cell count decreased [Recovered/Resolved]
  - Neutrophil count decreased [Recovered/Resolved]
